FAERS Safety Report 10630794 (Version 5)
Quarter: 2015Q2

REPORT INFORMATION
  Report Type: Spontaneous
  Country: JP (occurrence: None)
  Receive Date: 20141203
  Receipt Date: 20150406
  Transmission Date: 20150821
  Serious: Yes (Death, Hospitalization, Other)
  Sender: FDA-Public Use
  Company Number: ADR-2014-02265

PATIENT
  Age: 61 Year
  Sex: Male
  Weight: 68 kg

DRUGS (1)
  1. GABALON INTRATHECAL 0.05% [Suspect]
     Active Substance: BACLOFEN
     Indication: MOTOR NEURONE DISEASE
     Dosage: 68 MCG/DAY (SEE B5)
     Dates: start: 20140926, end: 20141123

REACTIONS (13)
  - Sepsis [None]
  - Procedural complication [None]
  - Extradural neoplasm [None]
  - Altered state of consciousness [None]
  - Blood pressure decreased [None]
  - Xanthochromia [None]
  - Escherichia test positive [None]
  - Muscle spasticity [None]
  - Cardiopulmonary failure [None]
  - Abscess [None]
  - Heart rate increased [None]
  - Medical device complication [None]
  - Bone marrow disorder [None]

NARRATIVE: CASE EVENT DATE: 20141122
